FAERS Safety Report 4452461-X (Version None)
Quarter: 2004Q3

REPORT INFORMATION
  Report Type: 
  Country: None (occurrence: None)
  Receive Date: 20040916
  Receipt Date: 20040903
  Transmission Date: 20050211
  Serious: Yes (Life-Threatening, Hospitalization)
  Sender: FDA-Public Use
  Company Number: 2004AP04706

PATIENT
  Age: 24 Year
  Sex: Male

DRUGS (1)
  1. XYLOCAINE [Suspect]
     Indication: LOCAL ANAESTHESIA
     Dosage: 25 MG DAILY TP
     Route: 061
     Dates: start: 20040901

REACTIONS (2)
  - BLOOD PRESSURE DECREASED [None]
  - SHOCK [None]
